FAERS Safety Report 10050960 (Version 2)
Quarter: 2014Q2

REPORT INFORMATION
  Report Type: Spontaneous
  Country: US (occurrence: US)
  Receive Date: 20140401
  Receipt Date: 20140505
  Transmission Date: 20141212
  Serious: No
  Sender: FDA-Public Use
  Company Number: US-BAYER-2014-048961

PATIENT
  Age: 40 Year
  Sex: Male
  Weight: 91 kg

DRUGS (3)
  1. ALEVE CAPLET [Suspect]
     Indication: HEADACHE
     Dosage: 2 DF, PRN, EVERY 6 HOURS
     Route: 048
  2. ALEVE CAPLET [Suspect]
     Indication: BACK PAIN
  3. IBUPROFEN [Concomitant]
     Dosage: UNK

REACTIONS (3)
  - Malaise [Recovered/Resolved]
  - Drug ineffective [None]
  - Extra dose administered [None]
